FAERS Safety Report 6402043-5 (Version None)
Quarter: 2009Q4

REPORT INFORMATION
  Report Type: 
  Country: None (occurrence: None)
  Receive Date: 20091015
  Receipt Date: 20091009
  Transmission Date: 20100525
  Serious: Yes (Other)
  Sender: FDA-Public Use
  Company Number: BR-PFIZER INC-2009244380

PATIENT
  Age: 32 Year

DRUGS (1)
  1. DEPO-PROVERA [Suspect]
     Indication: CONTRACEPTION
     Dosage: 150 MG, UNK
     Dates: start: 20090608

REACTIONS (4)
  - INFLUENZA [None]
  - PELVIC PAIN [None]
  - UTERINE DISORDER [None]
  - UTERINE HAEMORRHAGE [None]
